FAERS Safety Report 25933049 (Version 3)
Quarter: 2025Q4

REPORT INFORMATION
  Report Type: Report from Study
  Country: US (occurrence: US)
  Receive Date: 20251017
  Receipt Date: 20251219
  Transmission Date: 20260118
  Serious: Yes (Other)
  Sender: ACADIA PHARMACEUTICALS
  Company Number: US-ACADIA PHARMACEUTICALS INC.-ACA-2025-PIM-011208

PATIENT
  Sex: Male

DRUGS (3)
  1. NUPLAZID [Suspect]
     Active Substance: PIMAVANSERIN TARTRATE
     Indication: Parkinson^s disease psychosis
     Dosage: 34 MILLIGRAM, QD (NIGHTLY)
     Route: 048
     Dates: start: 20240807
  2. ALPRAZOLAM [Concomitant]
     Active Substance: ALPRAZOLAM
  3. MELATONIN [Concomitant]
     Active Substance: MELATONIN
     Dosage: BD PEN MIS

REACTIONS (4)
  - Myocardial injury [Unknown]
  - Loss of consciousness [Recovered/Resolved]
  - Dementia with Lewy bodies [Not Recovered/Not Resolved]
  - Drug interaction [Not Recovered/Not Resolved]
